FAERS Safety Report 24008938 (Version 1)
Quarter: 2024Q2

REPORT INFORMATION
  Report Type: Spontaneous
  Country: CN (occurrence: CN)
  Receive Date: 20240625
  Receipt Date: 20240625
  Transmission Date: 20240716
  Serious: Yes (Life-Threatening)
  Sender: FDA-Public Use
  Company Number: CN-SA-SAC20240621001209

PATIENT
  Age: 68 Year
  Sex: Female
  Weight: 42 kg

DRUGS (2)
  1. OXALIPLATIN [Suspect]
     Active Substance: OXALIPLATIN
     Indication: Colon cancer
     Dosage: 100 MG, QD
     Route: 041
     Dates: start: 20240619, end: 20240619
  2. DEXTROSE [Concomitant]
     Active Substance: DEXTROSE\DEXTROSE MONOHYDRATE
     Dosage: 500 ML, QD
     Dates: start: 20240619

REACTIONS (6)
  - Oxygen saturation decreased [Recovering/Resolving]
  - Hyperhidrosis [Recovering/Resolving]
  - Lip discolouration [Recovering/Resolving]
  - Tachypnoea [Recovering/Resolving]
  - Cyanosis [Recovering/Resolving]
  - Chest discomfort [Recovering/Resolving]

NARRATIVE: CASE EVENT DATE: 20240619
